FAERS Safety Report 6992415-2 (Version None)
Quarter: 2010Q3

REPORT INFORMATION
  Report Type: 
  Country: None (occurrence: None)
  Receive Date: 20100917
  Receipt Date: 20100907
  Transmission Date: 20110219
  Serious: Yes (Life-Threatening, Hospitalization)
  Sender: FDA-Public Use
  Company Number: PHHY2010DE60412

PATIENT
  Age: 73 Year
  Sex: Female

DRUGS (3)
  1. RASILEZ [Suspect]
     Indication: HYPERTENSION
     Dosage: 150 MG (1 PER DAY)
     Route: 048
     Dates: start: 20100607, end: 20100614
  2. DIOVAN HCT [Suspect]
     Indication: HYPERTENSION
     Dosage: 180/12.5 MG(1 PER DAY)
     Route: 048
     Dates: end: 20100614
  3. VELMETIA (METFORMIN HYDROCHLORIDE/SITAGLIPTIN PHOSPHATE) [Suspect]
     Indication: TYPE 2 DIABETES MELLITUS
     Dosage: 1000/50 MG( 2 PER DAY)
     Route: 048
     Dates: start: 20100607, end: 20100614

REACTIONS (2)
  - LACTIC ACIDOSIS [None]
  - RENAL FAILURE ACUTE [None]
